FAERS Safety Report 8472690-8 (Version None)
Quarter: 2012Q2

REPORT INFORMATION
  Report Type: 
  Country: None (occurrence: None)
  Receive Date: 20120627
  Receipt Date: 20120625
  Transmission Date: 20120825
  Serious: Yes (Other)
  Sender: FDA-Public Use
  Company Number: US-PURDUE-USA-2012-0088311

PATIENT
  Sex: Male

DRUGS (2)
  1. BUTRANS [Suspect]
     Indication: NECK PAIN
     Dosage: 20 MCG/HR, UNK
     Route: 062
     Dates: start: 20120101
  2. PERCOCET [Concomitant]
     Indication: BREAKTHROUGH PAIN
     Dosage: UNK MG, SEE TEXT
     Route: 048
     Dates: start: 20120501

REACTIONS (8)
  - ABDOMINAL PAIN [None]
  - WEIGHT DECREASED [None]
  - GALLBLADDER DISORDER [None]
  - PAIN [None]
  - FLATULENCE [None]
  - MUSCULOSKELETAL CHEST PAIN [None]
  - OESOPHAGEAL ULCER [None]
  - DIARRHOEA [None]
